FAERS Safety Report 6232718-2 (Version None)
Quarter: 2009Q2

REPORT INFORMATION
  Report Type: 
  Country: None (occurrence: None)
  Receive Date: 20090612
  Receipt Date: 20090612
  Transmission Date: 20091009
  Serious: Yes (Other)
  Sender: FDA-Public Use
  Company Number: None

PATIENT
  Age: 46 Year
  Sex: Female
  Weight: 86.1834 kg

DRUGS (1)
  1. TIGECYCLINE 50MG [Suspect]
     Indication: DEVICE RELATED INFECTION
     Dosage: 50MG 12 HRS IV
     Route: 042
     Dates: start: 20090504, end: 20090603

REACTIONS (2)
  - DRUG INEFFECTIVE [None]
  - NAUSEA [None]
